FAERS Safety Report 8483276-3 (Version None)
Quarter: 2012Q3

REPORT INFORMATION
  Report Type: 
  Country: None (occurrence: None)
  Receive Date: 20120702
  Receipt Date: 20120622
  Transmission Date: 20120928
  Serious: Yes (Other)
  Sender: FDA-Public Use
  Company Number: US-ELI_LILLY_AND_COMPANY-US201206007854

PATIENT
  Sex: Male

DRUGS (3)
  1. IMMUNE GLOBULIN NOS [Concomitant]
     Indication: PLATELET DISORDER
  2. IGG [Concomitant]
     Indication: PLATELET DISORDER
  3. FORTEO [Suspect]
     Indication: OSTEOPOROSIS
     Dosage: 20 UNK, UNK

REACTIONS (4)
  - BLADDER CANCER [None]
  - BONE PAIN [None]
  - INJECTION SITE HAEMATOMA [None]
  - BACK PAIN [None]
